FAERS Safety Report 7911420-2 (Version None)
Quarter: 2011Q4

REPORT INFORMATION
  Report Type: 
  Country: None (occurrence: None)
  Receive Date: 20111114
  Receipt Date: 20111031
  Transmission Date: 20120403
  Serious: Yes (Other)
  Sender: FDA-Public Use
  Company Number: JP-UCBSA-043445

PATIENT
  Age: 16 Year
  Sex: Male
  Weight: 59 kg

DRUGS (10)
  1. TPN ELECTROLYTES IN PLASTIC CONTAINER [Concomitant]
     Dates: start: 20111005, end: 20111015
  2. PHYSIO [Concomitant]
     Dosage: 35
     Dates: start: 20111005, end: 20111015
  3. ZONISAMIDE [Concomitant]
     Indication: EPILEPSY
     Dosage: DAILY DOSE 200 MG
     Route: 048
     Dates: start: 20000818
  4. DIAZEPAM [Concomitant]
     Indication: INSOMNIA
     Dosage: DAILY DOSE 7 MG
     Route: 048
     Dates: start: 20090902
  5. MOTILIUM [Concomitant]
     Indication: VOMITING
     Dates: start: 20111001, end: 20111014
  6. KEPPRA [Suspect]
     Indication: EPILEPSY
     Route: 048
     Dates: start: 20110928, end: 20110930
  7. PHENYTOIN SODIUM CAP [Concomitant]
     Indication: EPILEPSY
     Route: 048
     Dates: start: 19970306
  8. SOLACET [Concomitant]
     Dates: start: 20111005, end: 20111015
  9. KEPPRA [Suspect]
     Route: 048
     Dates: start: 20110909, end: 20110927
  10. VEEN D [Concomitant]
     Dates: start: 20111005, end: 20111015

REACTIONS (3)
  - DECREASED APPETITE [None]
  - VOMITING [None]
  - ABNORMAL BEHAVIOUR [None]
